FAERS Safety Report 23029785 (Version 1)
Quarter: 2023Q4

REPORT INFORMATION
  Report Type: Report from Study
  Country: US (occurrence: US)
  Receive Date: 20231004
  Receipt Date: 20231004
  Transmission Date: 20240109
  Serious: Yes (Hospitalization, Other)
  Sender: FDA-Public Use
  Company Number: US-ABBVIE-5435194

PATIENT
  Sex: Male

DRUGS (2)
  1. SKYRIZI [Suspect]
     Active Substance: RISANKIZUMAB-RZAA
     Indication: Psoriasis
     Dosage: WEEK 0?STRENGTH:150MG/ML
     Route: 058
     Dates: start: 20230801, end: 20230801
  2. SKYRIZI [Suspect]
     Active Substance: RISANKIZUMAB-RZAA
     Dosage: WEEK 4, THEN EVERY 12 WEEKS THEREAFTER.?STRENGTH: 150MG/ML
     Route: 058
     Dates: start: 20230829, end: 20230829

REACTIONS (5)
  - Pericardial effusion [Unknown]
  - Drug ineffective [Unknown]
  - Scratch [Unknown]
  - Psoriasis [Not Recovered/Not Resolved]
  - Wound haemorrhage [Unknown]

NARRATIVE: CASE EVENT DATE: 20230101
